FAERS Safety Report 16324671 (Version 1)
Quarter: 2019Q2

REPORT INFORMATION
  Report Type: Spontaneous
  Country: US (occurrence: US)
  Receive Date: 20190516
  Receipt Date: 20190516
  Transmission Date: 20190711
  Serious: No
  Sender: FDA-Public Use
  Company Number: None

PATIENT
  Age: 52 Year
  Sex: Female
  Weight: 202.5 kg

DRUGS (17)
  1. K+ [Concomitant]
     Active Substance: POTASSIUM
  2. LOPRESSOR [Concomitant]
     Active Substance: METOPROLOL TARTRATE
  3. WARFARIN [Concomitant]
     Active Substance: WARFARIN
  4. TART CHERRY JUICE [Concomitant]
  5. CLARITIN [Concomitant]
     Active Substance: LORATADINE
  6. LIALDA [Concomitant]
     Active Substance: MESALAMINE
  7. VITAMIN D3 [Concomitant]
     Active Substance: CHOLECALCIFEROL
  8. IMURAN [Concomitant]
     Active Substance: AZATHIOPRINE
  9. WOMANS MULTIVITAMIN [Concomitant]
  10. LEVOTHYROXINE. [Concomitant]
     Active Substance: LEVOTHYROXINE
  11. VENTOLIN [Concomitant]
     Active Substance: ALBUTEROL SULFATE
  12. ACETAMINOPHEN. [Concomitant]
     Active Substance: ACETAMINOPHEN
  13. APRISO [Suspect]
     Active Substance: MESALAMINE
     Indication: COLITIS ULCERATIVE
     Dosage: ?          QUANTITY:4 CAPSULE(S);?
     Route: 048
     Dates: start: 20190328, end: 20190330
  14. LOPERAMIDE [Concomitant]
     Active Substance: LOPERAMIDE
  15. RANITIDINE. [Concomitant]
     Active Substance: RANITIDINE
  16. BUMEX [Concomitant]
     Active Substance: BUMETANIDE
  17. PROZAC [Concomitant]
     Active Substance: FLUOXETINE HYDROCHLORIDE

REACTIONS (5)
  - Dysstasia [None]
  - Pyrexia [None]
  - Chills [None]
  - Delirium [None]
  - Insurance issue [None]

NARRATIVE: CASE EVENT DATE: 20190428
